FAERS Safety Report 13955336 (Version 1)
Quarter: 2017Q3

REPORT INFORMATION
  Report Type: Spontaneous
  Country: US (occurrence: US)
  Receive Date: 20170911
  Receipt Date: 20170911
  Transmission Date: 20171128
  Serious: Yes (Hospitalization, Other)
  Sender: FDA-Public Use
  Company Number: US-PFIZER INC-2017374637

PATIENT
  Age: 46 Year
  Sex: Female

DRUGS (4)
  1. OXYTOCIN. [Suspect]
     Active Substance: OXYTOCIN
     Dosage: 50 IU, INFUSION OVER A 4-HOUR PERIOD AND REPEATED EVERY 4 HOURS FOR A TOTAL OF 12 HOURS
     Route: 042
  2. SODIUM CHLORIDE. [Suspect]
     Active Substance: SODIUM CHLORIDE
     Dosage: 180 ML, UNK
  3. DEXTROSE. [Concomitant]
     Active Substance: DEXTROSE
     Dosage: 500 CC DEXTROSE, INFUSION OVER A 4-HOUR PERIOD AND REPEATED EVERY 4 HOURS FOR A TOTAL OF 12 HOURS
     Route: 042
  4. WATER. [Concomitant]
     Active Substance: WATER
     Dosage: UNK
     Route: 042

REACTIONS (1)
  - Uterine rupture [Recovering/Resolving]
